FAERS Safety Report 13113394 (Version 1)
Quarter: 2017Q1

REPORT INFORMATION
  Report Type: Spontaneous
  Country: None (occurrence: US)
  Receive Date: 20170113
  Receipt Date: 20170113
  Transmission Date: 20170428
  Serious: Yes (Hospitalization)
  Sender: FDA-Public Use
  Company Number: None

PATIENT
  Age: 8 Year
  Sex: Male
  Weight: 26.8 kg

DRUGS (6)
  1. DEXAMETHASONE. [Suspect]
     Active Substance: DEXAMETHASONE
     Dates: end: 20170109
  2. VINCRISTINE SULFATE. [Suspect]
     Active Substance: VINCRISTINE SULFATE
     Dates: end: 20170104
  3. ONCASPAR [Suspect]
     Active Substance: PEGASPARGASE
     Dates: end: 20170106
  4. METHOTREXATE. [Suspect]
     Active Substance: METHOTREXATE
     Dates: end: 20161228
  5. CYTARABINE. [Suspect]
     Active Substance: CYTARABINE
     Dates: end: 20161221
  6. DAUNORUBICIN [Suspect]
     Active Substance: DAUNORUBICIN
     Dates: end: 20170104

REACTIONS (10)
  - Clostridium test positive [None]
  - Blood sodium decreased [None]
  - Gastrointestinal sounds abnormal [None]
  - Decreased appetite [None]
  - Gastroenteritis [None]
  - Abdominal pain [None]
  - Large intestine perforation [None]
  - Flatulence [None]
  - Purulent discharge [None]
  - Pneumoperitoneum [None]

NARRATIVE: CASE EVENT DATE: 20170109
